FAERS Safety Report 8049277-4 (Version None)
Quarter: 2012Q1

REPORT INFORMATION
  Report Type: 
  Country: None (occurrence: None)
  Receive Date: 20120117
  Receipt Date: 20120113
  Transmission Date: 20120608
  Serious: Yes (Death)
  Sender: FDA-Public Use
  Company Number: DE-ROCHE-1018751

PATIENT
  Sex: Female
  Weight: 37 kg

DRUGS (9)
  1. AVASTIN [Suspect]
     Dosage: 575 MG
     Route: 042
     Dates: start: 20111122
  2. ASPIRIN [Concomitant]
     Dosage: DOSE 1X1
     Dates: start: 20100101
  3. PACLITAXEL [Suspect]
     Dosage: TOTAL DOSE 99 MG
     Dates: start: 20111115
  4. VERAPAMIL [Concomitant]
     Dosage: TOTAL 80, DOSE 1X1
     Dates: start: 20100101
  5. DIGITOXIN TAB [Concomitant]
     Dosage: TOTAL DOSE 0.5, DOSE 1X1
     Dates: start: 20100101
  6. PACLITAXEL [Suspect]
     Indication: BREAST CANCER
     Dosage: TOTAL DOSE 99 MG. LAST DOSE PRIOR TO SAE 29 NOV 2011
     Route: 042
     Dates: start: 20110905
  7. DOXORUBICIN HCL [Suspect]
     Dosage: TOTAL DOSE 25 MG, LAST DOSE PRIRO TO SAE WAS 29 NOV 2011
     Dates: start: 20111115
  8. AVASTIN [Suspect]
     Indication: BREAST CANCER
     Route: 042
     Dates: start: 20110905, end: 20111018
  9. DOXORUBICIN HCL [Suspect]
     Indication: BREAST CANCER
     Dosage: TOTAL DOSE 25 MG
     Dates: start: 20110905, end: 20111101

REACTIONS (1)
  - MYOCARDIAL INFARCTION [None]
